FAERS Safety Report 24962964 (Version 1)
Quarter: 2025Q1

REPORT INFORMATION
  Report Type: Report from Study
  Country: CO (occurrence: CO)
  Receive Date: 20250213
  Receipt Date: 20250213
  Transmission Date: 20250409
  Serious: Yes (Other)
  Sender: ABBVIE
  Company Number: CO-JNJFOC-20250198004

PATIENT
  Age: 44 Year
  Sex: Female
  Weight: 57 kg

DRUGS (1)
  1. IMBRUVICA [Suspect]
     Active Substance: IBRUTINIB
     Indication: Chronic lymphocytic leukaemia
     Route: 048
     Dates: start: 20240419, end: 20250129

REACTIONS (4)
  - Lymphadenitis [Unknown]
  - Product quality issue [Unknown]
  - Product container seal issue [Unknown]
  - Product dose omission issue [Unknown]

NARRATIVE: CASE EVENT DATE: 20250101
